FAERS Safety Report 10615790 (Version 2)
Quarter: 2014Q4

REPORT INFORMATION
  Report Type: Report from Study
  Country: CA (occurrence: CA)
  Receive Date: 20141201
  Receipt Date: 20141201
  Transmission Date: 20150529
  Serious: Yes (Other)
  Sender: FDA-Public Use
  Company Number: CA-JNJFOC-20140924599

PATIENT
  Age: 45 Year
  Sex: Female

DRUGS (5)
  1. IBUPROFEN. [Concomitant]
     Active Substance: IBUPROFEN
     Route: 065
  2. SIMPONI [Suspect]
     Active Substance: GOLIMUMAB
     Indication: RHEUMATOID ARTHRITIS
     Route: 042
     Dates: start: 20140605
  3. DICETEL [Concomitant]
     Active Substance: PINAVERIUM BROMIDE
     Route: 065
  4. CYMBALTA [Concomitant]
     Active Substance: DULOXETINE HYDROCHLORIDE
     Route: 065
  5. METHOTREXATE [Concomitant]
     Active Substance: METHOTREXATE
     Route: 058

REACTIONS (10)
  - Laceration [Not Recovered/Not Resolved]
  - Raynaud^s phenomenon [Unknown]
  - Oral herpes [Recovered/Resolved]
  - Irritable bowel syndrome [Unknown]
  - Mixed connective tissue disease [Unknown]
  - Paraesthesia [Unknown]
  - Skin atrophy [Unknown]
  - Pulmonary fibrosis [Unknown]
  - Rash [Not Recovered/Not Resolved]
  - Asthma [Unknown]

NARRATIVE: CASE EVENT DATE: 201408
